FAERS Safety Report 16934725 (Version 3)
Quarter: 2020Q2

REPORT INFORMATION
  Report Type: Other
  Country: CA (occurrence: CA)
  Receive Date: 20191018
  Receipt Date: 20200617
  Transmission Date: 20200713
  Serious: Yes (Other)
  Sender: FDA-Public Use
  Company Number: CA-BECTON DICKINSON-2019BDN00366

PATIENT

DRUGS (9)
  1. CHLORHEXIDINE [Suspect]
     Active Substance: CHLORHEXIDINE
     Route: 064
  2. INSULIN [Suspect]
     Active Substance: INSULIN NOS
     Route: 064
  3. METFORMIN [Suspect]
     Active Substance: METFORMIN HYDROCHLORIDE
     Route: 064
  4. MULTIVITAMINE(S) [Suspect]
     Active Substance: VITAMINS
     Route: 064
  5. METHYLDOPA. [Suspect]
     Active Substance: METHYLDOPA
     Route: 064
  6. DICLECTIN [Suspect]
     Active Substance: DOXYLAMINE SUCCINATE\PYRIDOXINE HYDROCHLORIDE
     Route: 064
  7. ASA [Suspect]
     Active Substance: ASPIRIN
  8. NIFEDIPINE. [Suspect]
     Active Substance: NIFEDIPINE
     Route: 064
  9. SILDENAFIL. [Suspect]
     Active Substance: SILDENAFIL

REACTIONS (2)
  - Foetal exposure during pregnancy [Unknown]
  - Premature baby [Unknown]
